FAERS Safety Report 10246305 (Version 1)
Quarter: 2014Q2

REPORT INFORMATION
  Report Type: Spontaneous
  Country: US (occurrence: None)
  Receive Date: 20140617
  Receipt Date: 20140617
  Transmission Date: 20141212
  Serious: No
  Sender: FDA-Public Use
  Company Number: None

PATIENT
  Age: 52 Year
  Sex: Female
  Weight: 81.65 kg

DRUGS (2)
  1. CLARITIN [Suspect]
     Indication: MULTIPLE ALLERGIES
     Dates: start: 20140522, end: 20140615
  2. CLARITIN [Suspect]
     Indication: PRURITUS
     Dates: start: 20140522, end: 20140615

REACTIONS (1)
  - Chapped lips [None]
